FAERS Safety Report 6255954-8 (Version None)
Quarter: 2009Q3

REPORT INFORMATION
  Report Type: 
  Country: None (occurrence: None)
  Receive Date: 20090706
  Receipt Date: 20090625
  Transmission Date: 20100115
  Serious: Yes (Other)
  Sender: FDA-Public Use
  Company Number: US-RANBAXY-2009US-24341

PATIENT

DRUGS (5)
  1. ISOTRETINOIN [Suspect]
     Indication: DRUG USE FOR UNKNOWN INDICATION
     Dosage: 30 MG, BID
     Route: 048
     Dates: start: 20090316, end: 20090520
  2. ISOTRETINOIN [Suspect]
     Dosage: 40 MG, QD
     Route: 048
     Dates: start: 20061127, end: 20070501
  3. ISOTRETINOIN [Suspect]
     Dosage: 10 MG, QD
     Route: 048
     Dates: start: 20060101, end: 20070101
  4. ISOTRETINOIN [Suspect]
     Dosage: 20 MG, QD
     Route: 048
     Dates: start: 20061127, end: 20070501
  5. PAXIL [Concomitant]
     Indication: ANXIETY
     Route: 048

REACTIONS (2)
  - ANXIETY [None]
  - PREGNANCY [None]
